FAERS Safety Report 4279364-8 (Version None)
Quarter: 2004Q1

REPORT INFORMATION
  Report Type: 
  Country: None (occurrence: None)
  Receive Date: 20040123
  Receipt Date: 20040112
  Transmission Date: 20041129
  Serious: Yes (Other)
  Sender: FDA-Public Use
  Company Number: UK041644

PATIENT
  Age: 46 Year
  Sex: Male
  Weight: 80 kg

DRUGS (6)
  1. ARANESP [Suspect]
     Indication: RENAL FAILURE CHRONIC
     Dosage: 30 MCG DAILY SC
     Route: 058
     Dates: start: 20030425
  2. LOSARTAN W/IDROCLOROTIAZIDE [Suspect]
  3. SODIUM BICARBONATE IN PLASTIC CONTAINER [Concomitant]
  4. CALCITRIOL [Concomitant]
  5. METOPROLOL [Concomitant]
  6. CALCIUM [Concomitant]

REACTIONS (3)
  - DERMATITIS ALLERGIC [None]
  - PRURITUS [None]
  - RASH PAPULAR [None]
